FAERS Safety Report 4691120-5 (Version None)
Quarter: 2005Q2

REPORT INFORMATION
  Report Type: 
  Country: None (occurrence: None)
  Receive Date: 20050610
  Receipt Date: 20050602
  Transmission Date: 20051028
  Serious: Yes (Hospitalization, Other)
  Sender: FDA-Public Use
  Company Number: 2004112033

PATIENT
  Age: 69 Year
  Sex: Male

DRUGS (5)
  1. CITALOR           (ATORVASTATIN) [Suspect]
     Indication: DYSLIPIDAEMIA
     Dosage: 10 MG (10 MG, 1 IN 1 D), ORAL
     Route: 048
     Dates: start: 20040903
  2. MONOCORDIL          (ISOSORBIDE MONONITRATE) [Concomitant]
  3. LASIX [Concomitant]
  4. SELOZOK               (METOPROLOL SUCCINATE) [Concomitant]
  5. ISORDIL [Concomitant]

REACTIONS (4)
  - DIFFICULTY IN WALKING [None]
  - DISCOMFORT [None]
  - DYSENTERY [None]
  - MYOCARDIAL INFARCTION [None]
